FAERS Safety Report 10169939 (Version 6)
Quarter: 2014Q3

REPORT INFORMATION
  Report Type: Report from Study
  Country: US (occurrence: US)
  Receive Date: 20140513
  Receipt Date: 20140829
  Transmission Date: 20150326
  Serious: Yes (Hospitalization, Other)
  Sender: FDA-Public Use
  Company Number: US-BAYER-2014-060638

PATIENT
  Age: 53 Year
  Sex: Male

DRUGS (4)
  1. STIVARGA [Suspect]
     Active Substance: REGORAFENIB
     Indication: COLON CANCER
     Dosage: 80 MG/DAY
     Route: 048
     Dates: start: 200404
  2. STIVARGA [Suspect]
     Active Substance: REGORAFENIB
     Indication: COLON CANCER
     Dosage: 160 MG, QD
     Route: 048
  3. STIVARGA [Suspect]
     Active Substance: REGORAFENIB
     Indication: COLON CANCER
     Dosage: 160 MG, QD
     Route: 048
     Dates: start: 20140415
  4. STIVARGA [Suspect]
     Active Substance: REGORAFENIB
     Indication: COLON CANCER
     Dosage: 160 MG, QD
     Route: 048
     Dates: start: 20140409

REACTIONS (13)
  - Pancreatitis [None]
  - Back pain [None]
  - Hypertension [None]
  - Musculoskeletal chest pain [Recovering/Resolving]
  - Diarrhoea [None]
  - Chest pain [None]
  - Blister [None]
  - Musculoskeletal chest pain [None]
  - Skin lesion [None]
  - Abdominal pain upper [None]
  - Abdominal pain [None]
  - Rash [None]
  - Skin lesion [Recovering/Resolving]

NARRATIVE: CASE EVENT DATE: 20140419
